FAERS Safety Report 15234649 (Version 1)
Quarter: 2018Q3

REPORT INFORMATION
  Report Type: Spontaneous
  Country: US (occurrence: US)
  Receive Date: 20180803
  Receipt Date: 20180803
  Transmission Date: 20181010
  Serious: No
  Sender: FDA-Public Use
  Company Number: US-SHIRE-US201829901

PATIENT
  Sex: Female

DRUGS (1)
  1. XIIDRA [Suspect]
     Active Substance: LIFITEGRAST
     Indication: DRY EYE
     Dosage: 1 GTT, IN EACH EYE AM/PM
     Route: 047
     Dates: start: 20180726

REACTIONS (3)
  - Visual impairment [Unknown]
  - Instillation site reaction [Unknown]
  - Vision blurred [Unknown]
